FAERS Safety Report 9192352 (Version 1)
Quarter: 2013Q1

REPORT INFORMATION
  Report Type: Spontaneous
  Country: US (occurrence: US)
  Receive Date: 20130327
  Receipt Date: 20130327
  Transmission Date: 20140127
  Serious: Yes (Hospitalization)
  Sender: FDA-Public Use
  Company Number: US-BAYER-2013-036789

PATIENT
  Age: 34 Year
  Sex: Female

DRUGS (8)
  1. YASMIN [Suspect]
  2. HYDROXYZINE PAMOATE [Concomitant]
     Dosage: 25 MG, UNK
  3. DOXYCYCLINE HYCLATE [DOXYCYCLINE HYCLATE] [Concomitant]
     Dosage: 100 MG, UNK
     Dates: start: 20110111
  4. PROMETHAZINE - CODEINE [CODEINE PHOSPHATE,PROMETHAZINE HYDROCHLORI [Concomitant]
     Dosage: UNK
     Dates: start: 20110131
  5. CIPROFLOXACIN [Concomitant]
     Dosage: 500 MG, UNK
     Dates: start: 20110131
  6. TREXIMET [Concomitant]
     Dosage: 500 MG, UNK
     Dates: start: 20120210
  7. ASMANEX [Concomitant]
  8. SYMBICORT [Concomitant]

REACTIONS (2)
  - Deep vein thrombosis [None]
  - Pulmonary embolism [None]
